FAERS Safety Report 8150020-9 (Version None)
Quarter: 2012Q1

REPORT INFORMATION
  Report Type: 
  Country: None (occurrence: None)
  Receive Date: 20120218
  Receipt Date: 20120207
  Transmission Date: 20120608
  Serious: Yes (Hospitalization)
  Sender: FDA-Public Use
  Company Number: CA-BRISTOL-MYERS SQUIBB COMPANY-16405318

PATIENT
  Age: 68 Year
  Sex: Female

DRUGS (3)
  1. ALPHACALCIDOL [Suspect]
  2. WARFARIN SODIUM [Suspect]
  3. CALCIUM CARBONATE [Suspect]

REACTIONS (1)
  - CALCIPHYLAXIS [None]
